FAERS Safety Report 6672952-0 (Version None)
Quarter: 2010Q2

REPORT INFORMATION
  Report Type: 
  Country: None (occurrence: None)
  Receive Date: 20100408
  Receipt Date: 20100331
  Transmission Date: 20101027
  Serious: Yes (Life-Threatening, Other)
  Sender: FDA-Public Use
  Company Number: A0852440A

PATIENT
  Age: 58 Year
  Sex: Female
  Weight: 60.9 kg

DRUGS (10)
  1. PAZOPANIB [Suspect]
     Indication: NON-SMALL CELL LUNG CANCER
     Route: 048
     Dates: start: 20100223, end: 20100324
  2. ERLOTINIB [Suspect]
     Indication: NON-SMALL CELL LUNG CANCER
     Dosage: 150MG PER DAY
     Route: 048
     Dates: start: 20100223, end: 20100324
  3. PERCOCET [Concomitant]
     Route: 048
     Dates: start: 20091016
  4. OXYCONTIN [Concomitant]
     Dosage: 20MG AS REQUIRED
     Route: 048
     Dates: start: 20100206
  5. PRILOSEC [Concomitant]
     Dosage: 20MG AS REQUIRED
     Route: 048
     Dates: start: 20090601
  6. PERDIEM [Concomitant]
     Dosage: 1TAB AS REQUIRED
     Route: 048
     Dates: start: 20100104
  7. M.V.I. [Concomitant]
     Dosage: 1TAB PER DAY
     Route: 048
     Dates: start: 19900101
  8. FOLIC ACID [Concomitant]
     Route: 048
     Dates: start: 20091010
  9. GINKO BILOBA [Concomitant]
     Route: 048
     Dates: start: 20040101, end: 20100212
  10. CALCIUM + VITAMIN D [Concomitant]
     Route: 048
     Dates: start: 20091001

REACTIONS (5)
  - ALANINE AMINOTRANSFERASE INCREASED [None]
  - ASPARTATE AMINOTRANSFERASE INCREASED [None]
  - BLOOD ALKALINE PHOSPHATASE INCREASED [None]
  - BLOOD BILIRUBIN INCREASED [None]
  - HEPATIC ENZYME INCREASED [None]
